FAERS Safety Report 8307566 (Version 5)
Quarter: 2013Q2

REPORT INFORMATION
  Report Type: Spontaneous
  Country: US (occurrence: US)
  Receive Date: 20111222
  Receipt Date: 20130624
  Transmission Date: 20140414
  Serious: Yes (Hospitalization, Other)
  Sender: FDA-Public Use
  Company Number: US-ROCHE-802996

PATIENT
  Age: 25 Year
  Sex: Female
  Weight: 54.48 kg

DRUGS (1)
  1. ACCUTANE [Suspect]
     Indication: ACNE
     Route: 065
     Dates: start: 199001, end: 199006

REACTIONS (4)
  - Crohn^s disease [Unknown]
  - Intestinal perforation [Unknown]
  - Inflammatory bowel disease [Unknown]
  - Anxiety [Unknown]
